FAERS Safety Report 4348961-3 (Version None)
Quarter: 2004Q2

REPORT INFORMATION
  Report Type: 
  Country: None (occurrence: None)
  Receive Date: 20040423
  Receipt Date: 20040416
  Transmission Date: 20050107
  Serious: No
  Sender: FDA-Public Use
  Company Number: 2004UW07773

PATIENT
  Age: 74 Year
  Sex: Male
  Weight: 74.8435 kg

DRUGS (4)
  1. IRESSA [Suspect]
     Indication: NON-SMALL CELL LUNG CANCER
     Dosage: 250 MG PO
     Route: 048
     Dates: start: 20031201, end: 20040415
  2. ALLOPURINOL TAB [Concomitant]
  3. HYDROCHLOROTHIAZIDE [Concomitant]
  4. LASIX [Concomitant]

REACTIONS (1)
  - DEEP VEIN THROMBOSIS [None]
